FAERS Safety Report 14616253 (Version 2)
Quarter: 2018Q1

REPORT INFORMATION
  Report Type: Spontaneous
  Country: JP (occurrence: JP)
  Receive Date: 20180309
  Receipt Date: 20180328
  Transmission Date: 20180509
  Serious: Yes (Death, Other)
  Sender: FDA-Public Use
  Company Number: JP-VIFOR (INTERNATIONAL) INC.-VIT-2018-02393

PATIENT
  Sex: Male

DRUGS (1)
  1. MIRCERA [Suspect]
     Active Substance: METHOXY POLYETHYLENE GLYCOL-EPOETIN BETA
     Indication: NEPHROGENIC ANAEMIA
     Dosage: SINGLE USE
     Route: 042
     Dates: start: 201712, end: 201712

REACTIONS (2)
  - Anaemia [Unknown]
  - Death [Fatal]

NARRATIVE: CASE EVENT DATE: 201712
